FAERS Safety Report 18543536 (Version 60)
Quarter: 2025Q2

REPORT INFORMATION
  Report Type: Report from Study
  Country: US (occurrence: US)
  Receive Date: 20201124
  Receipt Date: 20250607
  Transmission Date: 20250716
  Serious: Yes (Hospitalization, Other)
  Sender: TAKEDA
  Company Number: US-TAKEDA-US202005633

PATIENT
  Age: 58 Year
  Sex: Female
  Weight: 80 kg

DRUGS (49)
  1. HUMAN C1-ESTERASE INHIBITOR [Suspect]
     Active Substance: HUMAN C1-ESTERASE INHIBITOR
     Indication: Immune system disorder
  2. HUMAN C1-ESTERASE INHIBITOR [Suspect]
     Active Substance: HUMAN C1-ESTERASE INHIBITOR
     Indication: Hereditary angioedema
  3. HUMAN C1-ESTERASE INHIBITOR [Suspect]
     Active Substance: HUMAN C1-ESTERASE INHIBITOR
  4. HUMAN C1-ESTERASE INHIBITOR [Suspect]
     Active Substance: HUMAN C1-ESTERASE INHIBITOR
  5. HUMAN C1-ESTERASE INHIBITOR [Suspect]
     Active Substance: HUMAN C1-ESTERASE INHIBITOR
  6. HUMAN C1-ESTERASE INHIBITOR [Suspect]
     Active Substance: HUMAN C1-ESTERASE INHIBITOR
  7. HUMAN C1-ESTERASE INHIBITOR [Suspect]
     Active Substance: HUMAN C1-ESTERASE INHIBITOR
     Dosage: 2000 INTERNATIONAL UNIT, QD
  8. HUMAN C1-ESTERASE INHIBITOR [Suspect]
     Active Substance: HUMAN C1-ESTERASE INHIBITOR
  9. HUMAN C1-ESTERASE INHIBITOR [Suspect]
     Active Substance: HUMAN C1-ESTERASE INHIBITOR
     Dosage: 2000 INTERNATIONAL UNIT, Q72H
  10. FIRAZYR [Suspect]
     Active Substance: ICATIBANT ACETATE
     Indication: Immune system disorder
  11. FIRAZYR [Suspect]
     Active Substance: ICATIBANT ACETATE
  12. FIRAZYR [Suspect]
     Active Substance: ICATIBANT ACETATE
  13. FLECAINIDE [Suspect]
     Active Substance: FLECAINIDE
     Indication: Product used for unknown indication
  14. EPINEPHRINE [Concomitant]
     Active Substance: EPINEPHRINE
  15. LIPITOR [Concomitant]
     Active Substance: ATORVASTATIN CALCIUM
  16. FLECAINIDE ACETATE [Concomitant]
     Active Substance: FLECAINIDE ACETATE
  17. DEMEROL [Concomitant]
     Active Substance: MEPERIDINE HYDROCHLORIDE
  18. OXYCODONE HYDROCHLORIDE [Concomitant]
     Active Substance: OXYCODONE HYDROCHLORIDE
  19. SODIUM CHLORIDE [Concomitant]
     Active Substance: SODIUM CHLORIDE
  20. HEPARIN [Concomitant]
     Active Substance: HEPARIN SODIUM
  21. DIPHENHYDRAMINE HYDROCHLORIDE [Concomitant]
     Active Substance: DIPHENHYDRAMINE HYDROCHLORIDE
  22. NORVASC [Concomitant]
     Active Substance: AMLODIPINE BESYLATE
  23. DICLOFENAC SODIUM [Concomitant]
     Active Substance: DICLOFENAC SODIUM
  24. LIDOCAINE [Concomitant]
     Active Substance: LIDOCAINE
  25. METOPROLOL SUCCINATE [Concomitant]
     Active Substance: METOPROLOL SUCCINATE
  26. PROMETHAZINE HYDROCHLORIDE [Concomitant]
     Active Substance: PROMETHAZINE HYDROCHLORIDE
  27. TRIAMCINOLONE [Concomitant]
     Active Substance: TRIAMCINOLONE
  28. CICLOPIROX [Concomitant]
     Active Substance: CICLOPIROX
  29. AMLODIPINE BESYLATE;BENAZEPRIL [Concomitant]
  30. ELIQUIS [Concomitant]
     Active Substance: APIXABAN
  31. Lmx [Concomitant]
  32. AMLODIPINE BESYLATE [Concomitant]
     Active Substance: AMLODIPINE BESYLATE
  33. LIDOCAINE\PRILOCAINE [Concomitant]
     Active Substance: LIDOCAINE\PRILOCAINE
  34. STERILE WATER [Concomitant]
     Active Substance: WATER
  35. Azithromycin +Pharma [Concomitant]
  36. PREDNISONE ACETATE [Concomitant]
     Active Substance: PREDNISONE ACETATE
  37. AMLODIPINE [Concomitant]
     Active Substance: AMLODIPINE BESYLATE
  38. BENAZEPRIL [Concomitant]
     Active Substance: BENAZEPRIL HYDROCHLORIDE
  39. TAMBOCOR [Concomitant]
     Active Substance: FLECAINIDE ACETATE
  40. METOPROLOL [Concomitant]
     Active Substance: METOPROLOL
  41. DIPHENHYDRAMINE [Concomitant]
     Active Substance: DIPHENHYDRAMINE
  42. PROMETHAZINE [Concomitant]
     Active Substance: PROMETHAZINE HYDROCHLORIDE
  43. OXYCODONE [Concomitant]
     Active Substance: OXYCODONE
  44. DICLOFENAC [Concomitant]
     Active Substance: DICLOFENAC
  45. NITROFURANTOIN [Concomitant]
     Active Substance: NITROFURANTOIN
  46. TRIAMCINOLONE ACETONIDE [Concomitant]
     Active Substance: TRIAMCINOLONE ACETONIDE
  47. FOLIC ACID [Concomitant]
     Active Substance: FOLIC ACID
  48. VITAMIN D3 [Concomitant]
     Active Substance: CHOLECALCIFEROL
  49. PERCOCET [Concomitant]
     Active Substance: ACETAMINOPHEN\OXYCODONE HYDROCHLORIDE

REACTIONS (75)
  - Atrial fibrillation [Recovering/Resolving]
  - Bradycardia [Unknown]
  - Neuropathy peripheral [Unknown]
  - Pain in extremity [Unknown]
  - Hypertension [Unknown]
  - Contusion [Unknown]
  - Infusion site swelling [Unknown]
  - Peripheral swelling [Unknown]
  - Limb injury [Unknown]
  - Onychoclasis [Unknown]
  - Drug hypersensitivity [Unknown]
  - Body temperature increased [Unknown]
  - Respiratory tract infection [Unknown]
  - Procedural complication [Unknown]
  - Dyspnoea [Unknown]
  - Vertigo [Unknown]
  - Skin discolouration [Unknown]
  - Extrasystoles [Unknown]
  - Foot fracture [Unknown]
  - Back pain [Unknown]
  - Chills [Unknown]
  - Neck pain [Unknown]
  - Medical device site nerve damage [Unknown]
  - Catheter site swelling [Recovered/Resolved]
  - Eye pain [Unknown]
  - Musculoskeletal pain [Unknown]
  - Musculoskeletal chest pain [Unknown]
  - Poor venous access [Unknown]
  - Lichen sclerosus [Unknown]
  - Infusion site haemorrhage [Unknown]
  - Vulvovaginal rash [Unknown]
  - Abdominal distension [Unknown]
  - Product contamination [Unknown]
  - Device leakage [Unknown]
  - Injection site inflammation [Unknown]
  - Oropharyngeal pain [Unknown]
  - Gastroenteritis viral [Unknown]
  - Fall [Unknown]
  - Nasopharyngitis [Unknown]
  - Laryngitis [Unknown]
  - Gastrointestinal infection [Unknown]
  - COVID-19 [Unknown]
  - Drug effect less than expected [Unknown]
  - Catheter site extravasation [Unknown]
  - Incorrect dose administered [Unknown]
  - Off label use [Unknown]
  - Extra dose administered [Unknown]
  - Rash pruritic [Unknown]
  - Paranasal sinus inflammation [Unknown]
  - Rash papular [Unknown]
  - Productive cough [Unknown]
  - Dyspnoea exertional [Unknown]
  - Lethargy [Unknown]
  - Eczema [Unknown]
  - Asthenia [Unknown]
  - Breath sounds abnormal [Unknown]
  - Pollakiuria [Unknown]
  - Urinary incontinence [Unknown]
  - Pain [Unknown]
  - Chest discomfort [Unknown]
  - Fatigue [Unknown]
  - Chest pain [Unknown]
  - Sinusitis [Unknown]
  - Catheter site pain [Unknown]
  - Arthralgia [Unknown]
  - Dermatitis contact [Unknown]
  - Diarrhoea [Unknown]
  - Abdominal pain [Unknown]
  - Infusion site erythema [Unknown]
  - Infusion site reaction [Unknown]
  - Vomiting [Recovered/Resolved]
  - Hereditary angioedema [Unknown]
  - Headache [Unknown]
  - Dizziness [Unknown]
  - Nausea [Recovered/Resolved]

NARRATIVE: CASE EVENT DATE: 20180112
